FAERS Safety Report 7297464-5 (Version None)
Quarter: 2011Q1

REPORT INFORMATION
  Report Type: 
  Country: None (occurrence: None)
  Receive Date: 20110216
  Receipt Date: 20110210
  Transmission Date: 20110831
  Serious: Yes (Other)
  Sender: FDA-Public Use
  Company Number: US-ABBOTT-11P-163-0704294-00

PATIENT
  Sex: Male
  Weight: 70.37 kg

DRUGS (1)
  1. HUMIRA [Suspect]
     Indication: CROHN'S DISEASE
     Dates: start: 20081001, end: 20100501

REACTIONS (5)
  - NASOPHARYNGITIS [None]
  - DRUG INEFFECTIVE [None]
  - SCROTAL ABSCESS [None]
  - COUGH [None]
  - PERINEAL FISTULA [None]
